FAERS Safety Report 16782425 (Version 1)
Quarter: 2019Q3

REPORT INFORMATION
  Report Type: Spontaneous
  Country: GB (occurrence: GB)
  Receive Date: 20190906
  Receipt Date: 20190906
  Transmission Date: 20191005
  Serious: Yes (Hospitalization)
  Sender: FDA-Public Use
  Company Number: GB-MYLANLABS-2019M1083637

PATIENT
  Age: 68 Year
  Sex: Female
  Weight: 56 kg

DRUGS (15)
  1. FERROUS FUMARATE [Concomitant]
     Active Substance: FERROUS FUMARATE
     Dosage: TO BE RESTARTED 5 DAYS AFTER LAST DOSE OF FERINJECT
     Route: 048
  2. FELODIPINE. [Suspect]
     Active Substance: FELODIPINE
     Indication: ESSENTIAL HYPERTENSION
     Dosage: IN THE MORNING
     Route: 048
     Dates: start: 20180601, end: 20190321
  3. PROPRANOLOL [Concomitant]
     Active Substance: PROPRANOLOL HYDROCHLORIDE
  4. LEVOTHYROXINE. [Concomitant]
     Active Substance: LEVOTHYROXINE
  5. COSMOCOL [Concomitant]
  6. DIAZEPAM. [Concomitant]
     Active Substance: DIAZEPAM
     Dosage: DOSE REDUCED
  7. DULOXETINE. [Concomitant]
     Active Substance: DULOXETINE
  8. ZOPICLONE [Concomitant]
     Active Substance: ZOPICLONE
     Dosage: STOPPED
  9. TRAMADOL. [Suspect]
     Active Substance: TRAMADOL
     Indication: FIBROMYALGIA
     Dosage: 50 - 100MG FOUR TIMES A DAY
     Route: 048
     Dates: start: 20181201, end: 20190321
  10. OMEPRAZOLE. [Concomitant]
     Active Substance: OMEPRAZOLE
     Dosage: DOSE INCREASED ON DISCHARGE
  11. SODIUM PICOSULFATE [Concomitant]
     Active Substance: SODIUM PICOSULFATE
  12. RISPERIDONE. [Concomitant]
     Active Substance: RISPERIDONE
     Dosage: STOPPED
  13. PARACETAMOL [Concomitant]
     Active Substance: ACETAMINOPHEN
  14. NALOXEGOL [Concomitant]
     Active Substance: NALOXEGOL
  15. BENDROFLUMETHIAZIDE [Concomitant]
     Active Substance: BENDROFLUMETHIAZIDE

REACTIONS (8)
  - Condition aggravated [Unknown]
  - Hiatus hernia [Unknown]
  - Iron deficiency anaemia [Unknown]
  - Vomiting [Recovered/Resolved]
  - Gastritis [Unknown]
  - Oedema peripheral [Recovering/Resolving]
  - Abdominal pain upper [Unknown]
  - Faeces discoloured [Unknown]

NARRATIVE: CASE EVENT DATE: 20181205
